FAERS Safety Report 4681535-3 (Version None)
Quarter: 2005Q2

REPORT INFORMATION
  Report Type: 
  Country: None (occurrence: None)
  Receive Date: 20050602
  Receipt Date: 20050520
  Transmission Date: 20051028
  Serious: Yes (Hospitalization, Other)
  Sender: FDA-Public Use
  Company Number: 2005077932

PATIENT
  Age: 75 Year
  Sex: Female
  Weight: 68.0396 kg

DRUGS (5)
  1. BEXTRA [Suspect]
     Indication: OSTEOARTHRITIS
     Dosage: 20 MG (20 MG 1 IN 1 D) ORAL
     Route: 048
     Dates: start: 20041201, end: 20050121
  2. LIPITOR [Concomitant]
  3. NEURONTIN [Concomitant]
  4. MIACALCIN NASAL (CALCITONIN, SALMON) [Concomitant]
  5. VICODIN [Concomitant]

REACTIONS (5)
  - DIARRHOEA HAEMORRHAGIC [None]
  - GASTRIC ULCER [None]
  - HAEMORRHAGE [None]
  - NAUSEA [None]
  - VOMITING [None]
